FAERS Safety Report 11337787 (Version 1)
Quarter: 2015Q3

REPORT INFORMATION
  Report Type: Spontaneous
  Country: US (occurrence: US)
  Receive Date: 20150803
  Receipt Date: 20150803
  Transmission Date: 20151125
  Serious: No
  Sender: FDA-Public Use
  Company Number: US-ELI_LILLY_AND_COMPANY-US200912003959

PATIENT
  Sex: Male

DRUGS (12)
  1. DEPAKOTE [Concomitant]
     Active Substance: DIVALPROEX SODIUM
     Dosage: 2400 MG, UNK
  2. HALDOL [Concomitant]
     Active Substance: HALOPERIDOL
     Dosage: 10 MG, 2/D
  3. SYMBICORT [Concomitant]
     Active Substance: BUDESONIDE\FORMOTEROL FUMARATE DIHYDRATE
     Dosage: 1 D/F, 2/D
  4. ZYPREXA [Suspect]
     Active Substance: OLANZAPINE
     Dosage: 10 MG, EACH EVENING
  5. HALDOL [Concomitant]
     Active Substance: HALOPERIDOL
     Dosage: 150 MG, UNK
  6. PRINIVIL [Concomitant]
     Active Substance: LISINOPRIL
     Dosage: 2.5 MG, UNK
  7. DEPAKOTE [Concomitant]
     Active Substance: DIVALPROEX SODIUM
     Dosage: 1200 MG, UNK
  8. VOLTAREN [Concomitant]
     Active Substance: DICLOFENAC SODIUM
     Dosage: 75 MG, AS NEEDED
  9. ZYPREXA [Suspect]
     Active Substance: OLANZAPINE
     Dosage: 20 MG, EACH EVENING
  10. CARDURA [Concomitant]
     Active Substance: DOXAZOSIN MESYLATE
  11. NAMENDA [Concomitant]
     Active Substance: MEMANTINE HYDROCHLORIDE
     Dosage: 5 MG, UNK
  12. PROVENTIL                               /USA/ [Concomitant]
     Dosage: UNK, AS NEEDED

REACTIONS (9)
  - Prescribed overdose [Not Recovered/Not Resolved]
  - Incontinence [Not Recovered/Not Resolved]
  - Blood glucose increased [Unknown]
  - Extrapyramidal disorder [Not Recovered/Not Resolved]
  - Blood urea increased [Recovered/Resolved]
  - Alanine aminotransferase decreased [Not Recovered/Not Resolved]
  - Somnolence [Recovering/Resolving]
  - Aspartate aminotransferase decreased [Not Recovered/Not Resolved]
  - Hepatic function abnormal [Not Recovered/Not Resolved]

NARRATIVE: CASE EVENT DATE: 20091117
